FAERS Safety Report 7282619-6 (Version None)
Quarter: 2011Q1

REPORT INFORMATION
  Report Type: 
  Country: None (occurrence: None)
  Receive Date: 20110209
  Receipt Date: 20110131
  Transmission Date: 20110831
  Serious: Yes (Other)
  Sender: FDA-Public Use
  Company Number: GB-NOVOPROD-311434

PATIENT
  Sex: Male
  Weight: 115 kg

DRUGS (2)
  1. VICTOZA [Suspect]
     Indication: TYPE 2 DIABETES MELLITUS
     Dosage: 1.2 MG, QD
     Route: 058
     Dates: start: 20091125, end: 20100412
  2. VICTOZA [Suspect]
     Indication: OBESITY
     Dosage: UNK
     Dates: start: 20101021

REACTIONS (3)
  - BACK PAIN [None]
  - OFF LABEL USE [None]
  - SCIATICA [None]
